FAERS Safety Report 8509475-X (Version None)
Quarter: 2012Q3

REPORT INFORMATION
  Report Type: 
  Country: None (occurrence: None)
  Receive Date: 20120703
  Receipt Date: 20120618
  Transmission Date: 20120928
  Serious: Yes (Hospitalization, Other)
  Sender: FDA-Public Use
  Company Number: 2012MA007623

PATIENT
  Age: 55 Year
  Sex: Female

DRUGS (2)
  1. METFORMIN HYDROCHLORIDE [Suspect]
     Indication: TYPE 2 DIABETES MELLITUS
     Dosage: 3000 MG;QD
  2. INSULIN [Concomitant]

REACTIONS (8)
  - RENAL FAILURE ACUTE [None]
  - HYPERKALAEMIA [None]
  - LACTIC ACIDOSIS [None]
  - NAUSEA [None]
  - DRUG INTOLERANCE [None]
  - METABOLIC ACIDOSIS [None]
  - ABDOMINAL PAIN [None]
  - VOMITING [None]
